FAERS Safety Report 22083933 (Version 1)
Quarter: 2023Q1

REPORT INFORMATION
  Report Type: Report from Study
  Country: BR (occurrence: BR)
  Receive Date: 20230310
  Receipt Date: 20230310
  Transmission Date: 20230417
  Serious: Yes (Other)
  Sender: FDA-Public Use
  Company Number: BR-002147023-NVSC2023BR051664

PATIENT
  Sex: Male

DRUGS (1)
  1. ENTRESTO [Suspect]
     Active Substance: SACUBITRIL\VALSARTAN
     Indication: Myocardial infarction
     Dosage: 2 DOSAGE FORM, QD (49/51 OR 100) (ONE IN THE MORNING AND ONE IN THE EVENING) FOR OVER A YEAR (DATE N
     Route: 065

REACTIONS (3)
  - Deafness [Not Recovered/Not Resolved]
  - Cardiac disorder [Unknown]
  - Product use in unapproved indication [Unknown]
